FAERS Safety Report 21311783 (Version 1)
Quarter: 2022Q3

REPORT INFORMATION
  Report Type: Spontaneous
  Country: US (occurrence: None)
  Receive Date: 20220909
  Receipt Date: 20220909
  Transmission Date: 20221027
  Serious: No
  Sender: FDA-Public Use
  Company Number: US-ARIS GLOBAL-202203-0470

PATIENT
  Sex: Male

DRUGS (6)
  1. OXERVATE [Suspect]
     Active Substance: CENEGERMIN-BKBJ
     Indication: Neurotrophic keratopathy
     Route: 047
     Dates: start: 20220307
  2. XIIDRA [Concomitant]
     Active Substance: LIFITEGRAST
  3. LOTEMAX [Concomitant]
     Active Substance: LOTEPREDNOL ETABONATE
     Dosage: DROPS GEL
  4. BLOOD SERUM TEARS [Concomitant]
  5. RYDAPT [Concomitant]
     Active Substance: MIDOSTAURIN
  6. JAKAFI [Concomitant]
     Active Substance: RUXOLITINIB

REACTIONS (4)
  - Eye pain [Unknown]
  - Dry eye [Unknown]
  - Eyelid margin crusting [Unknown]
  - Eye swelling [Unknown]
